FAERS Safety Report 16571621 (Version 1)
Quarter: 2019Q3

REPORT INFORMATION
  Report Type: Spontaneous
  Country: US (occurrence: US)
  Receive Date: 20190715
  Receipt Date: 20190715
  Transmission Date: 20191004
  Serious: Yes (Other)
  Sender: FDA-Public Use
  Company Number: US-HORIZON-RAV-0217-2019

PATIENT
  Age: 6 Year
  Sex: Male

DRUGS (1)
  1. RAVICTI [Suspect]
     Active Substance: GLYCEROL PHENYLBUTYRATE
     Indication: UREA CYCLE DISORDER
     Dosage: 5 ML TID
     Route: 048
     Dates: start: 20140805

REACTIONS (1)
  - Ammonia increased [Unknown]

NARRATIVE: CASE EVENT DATE: 20190709
